FAERS Safety Report 7987672-X (Version None)
Quarter: 2011Q4

REPORT INFORMATION
  Report Type: 
  Country: None (occurrence: None)
  Receive Date: 20111216
  Receipt Date: 20111207
  Transmission Date: 20120403
  Serious: Yes (Other)
  Sender: FDA-Public Use
  Company Number: FR-ASTRAZENECA-2011SE74789

PATIENT
  Age: 50 Year
  Sex: Female

DRUGS (2)
  1. FASLODEX [Suspect]
     Route: 030
     Dates: start: 20110801
  2. FASLODEX [Suspect]
     Indication: BREAST CANCER
     Route: 030
     Dates: start: 20110501, end: 20110801

REACTIONS (2)
  - SUICIDAL IDEATION [None]
  - DEPRESSION [None]
